FAERS Safety Report 19020224 (Version 1)
Quarter: 2021Q1

REPORT INFORMATION
  Report Type: Spontaneous
  Country: US (occurrence: US)
  Receive Date: 20210317
  Receipt Date: 20210317
  Transmission Date: 20210420
  Serious: No
  Sender: FDA-Public Use
  Company Number: US-TORRENT-00010994

PATIENT
  Age: 69 Year
  Sex: Male

DRUGS (3)
  1. VENLAFAXINE [Suspect]
     Active Substance: VENLAFAXINE HYDROCHLORIDE
     Indication: BACK PAIN
     Dosage: THREE CAPSULES BY MOUTH ONCE DAILY
     Route: 048
     Dates: end: 201905
  2. VENLAFAXINE [Suspect]
     Active Substance: VENLAFAXINE HYDROCHLORIDE
     Indication: BACK PAIN
     Dosage: DOSE REDUCED BACK TO 112.5 MG ONCE DAILY
     Route: 048
     Dates: start: 2012
  3. VENLAFAXINE [Suspect]
     Active Substance: VENLAFAXINE HYDROCHLORIDE
     Indication: BACK PAIN
     Dosage: THREE CAPSULES BY MOUTH ONCE DAILY
     Route: 048

REACTIONS (13)
  - Arthralgia [Recovered/Resolved]
  - Chest pain [Recovered/Resolved]
  - Off label use [Not Recovered/Not Resolved]
  - Intentional product use issue [Not Recovered/Not Resolved]
  - Withdrawal syndrome [Recovered/Resolved]
  - Therapeutic product effective for unapproved indication [Recovered/Resolved]
  - Anorgasmia [Recovered/Resolved]
  - Dysuria [Recovered/Resolved]
  - Disturbance in attention [Recovered/Resolved]
  - Cardiac flutter [Recovered/Resolved]
  - Feeling abnormal [Recovered/Resolved]
  - Drug ineffective for unapproved indication [Not Recovered/Not Resolved]
  - Palpitations [Recovered/Resolved]

NARRATIVE: CASE EVENT DATE: 2012
